FAERS Safety Report 25390267 (Version 1)
Quarter: 2025Q2

REPORT INFORMATION
  Report Type: Spontaneous
  Country: CN (occurrence: CN)
  Receive Date: 20250603
  Receipt Date: 20250603
  Transmission Date: 20250716
  Serious: Yes (Other)
  Sender: PFIZER
  Company Number: CN-PFIZER INC-PV202500064927

PATIENT
  Age: 25 Year
  Sex: Female
  Weight: 45.6 kg

DRUGS (4)
  1. CYTARABINE [Suspect]
     Active Substance: CYTARABINE
     Indication: Leukaemia
     Dosage: 50 MG, 1X/DAY
     Route: 037
     Dates: start: 20250512, end: 20250515
  2. METHOTREXATE SODIUM [Suspect]
     Active Substance: METHOTREXATE SODIUM
     Indication: Leukaemia
     Dosage: 15 MG, 1X/DAY
     Route: 037
     Dates: start: 20250512, end: 20250515
  3. METHOTREXATE SODIUM [Suspect]
     Active Substance: METHOTREXATE SODIUM
     Indication: Leukaemia
     Dosage: 1 G, 1X/DAY
     Route: 042
     Dates: start: 20250514, end: 20250515
  4. AMIFOSTINE [Suspect]
     Active Substance: AMIFOSTINE
     Indication: Prophylaxis
     Dosage: 0.5 G, 1X/DAY
     Route: 041
     Dates: start: 20250514, end: 20250515

REACTIONS (3)
  - Nausea [Recovering/Resolving]
  - Vomiting [Recovering/Resolving]
  - Pain in extremity [Recovering/Resolving]

NARRATIVE: CASE EVENT DATE: 20250515
